FAERS Safety Report 6342708-7 (Version None)
Quarter: 2009Q3

REPORT INFORMATION
  Report Type: 
  Country: None (occurrence: None)
  Receive Date: 20090908
  Receipt Date: 20080418
  Transmission Date: 20100115
  Serious: No
  Sender: FDA-Public Use
  Company Number: JP-ROCHE-563687

PATIENT
  Sex: Female

DRUGS (3)
  1. OSELTAMIVIR [Suspect]
     Route: 048
     Dates: start: 20080122, end: 20080122
  2. OSELTAMIVIR [Suspect]
     Route: 048
     Dates: start: 20080123, end: 20080124
  3. OSELTAMIVIR [Suspect]
     Route: 048
     Dates: start: 20080125, end: 20080125

REACTIONS (2)
  - NO ADVERSE EVENT [None]
  - PREGNANCY [None]
